FAERS Safety Report 4887534-0 (Version None)
Quarter: 2006Q1

REPORT INFORMATION
  Report Type: 
  Country: None (occurrence: None)
  Receive Date: 20060123
  Receipt Date: 20060111
  Transmission Date: 20060701
  Serious: Yes (Hospitalization)
  Sender: FDA-Public Use
  Company Number: PHRM2006FR00491

PATIENT
  Age: 46 Year
  Sex: Male

DRUGS (5)
  1. AREDIA [Suspect]
     Indication: ARTHRALGIA
     Dosage: 1 DF, QD
     Route: 042
     Dates: start: 20050512, end: 20050512
  2. MYOLASTAN [Suspect]
     Indication: ARTHRALGIA
     Dosage: 1 DF, QD
     Route: 048
     Dates: start: 20050412, end: 20050519
  3. ENDOXAN [Concomitant]
     Indication: MULTIPLE MYELOMA
     Dosage: 1.2 G
     Dates: start: 20050418, end: 20050418
  4. SOLU-MEDROL [Concomitant]
     Indication: MULTIPLE MYELOMA
     Dates: start: 20050418, end: 20050421
  5. RADIOTHERAPY [Suspect]
     Dates: start: 20050512, end: 20050519

REACTIONS (6)
  - DERMATITIS BULLOUS [None]
  - ERYTHEMA [None]
  - LIP EROSION [None]
  - PARAESTHESIA [None]
  - STEVENS-JOHNSON SYNDROME [None]
  - WALKING DISABILITY [None]
